FAERS Safety Report 8821381 (Version 2)
Quarter: 2012Q4

REPORT INFORMATION
  Report Type: 
  Country: NL (occurrence: NL)
  Receive Date: 20121002
  Receipt Date: 20121015
  Transmission Date: 20130627
  Serious: Yes (Other)
  Sender: FDA-Public Use
  Company Number: NL-ABBOTT-12P-114-0989960-00

PATIENT
  Age: 59 Year
  Sex: Male

DRUGS (2)
  1. DEPAKINE CHRONO [Suspect]
     Indication: EPILEPSY
     Dosage: extended release
     Route: 048
     Dates: start: 1982, end: 201206
  2. BISOPROLOL [Concomitant]
     Indication: PRODUCT USED FOR UNKNOWN INDICATION
     Dates: start: 1995

REACTIONS (4)
  - Cognitive disorder [Recovered/Resolved]
  - Parkinsonism [Recovered/Resolved]
  - Lethargy [Recovered/Resolved]
  - Amnesia [Recovered/Resolved]
